FAERS Safety Report 9070516 (Version 2)
Quarter: 2013Q1

REPORT INFORMATION
  Report Type: Report from Study
  Country: CA (occurrence: CA)
  Receive Date: 20130215
  Receipt Date: 20130221
  Transmission Date: 20140127
  Serious: Yes (Hospitalization)
  Sender: FDA-Public Use
  Company Number: CA-JNJFOC-20130116575

PATIENT
  Age: 44 Year
  Sex: Female
  Weight: 96.16 kg

DRUGS (1)
  1. REMICADE [Suspect]
     Indication: ANKYLOSING SPONDYLITIS
     Route: 042
     Dates: start: 20121009

REACTIONS (2)
  - Muscle rupture [Unknown]
  - Mobility decreased [Unknown]
